FAERS Safety Report 15367797 (Version 3)
Quarter: 2019Q1

REPORT INFORMATION
  Report Type: Spontaneous
  Country: PL (occurrence: PL)
  Receive Date: 20180910
  Receipt Date: 20190227
  Transmission Date: 20190417
  Serious: Yes (Other)
  Sender: FDA-Public Use
  Company Number: PL-MYLANLABS-2018M1066514

PATIENT
  Age: 46 Year
  Sex: Female

DRUGS (16)
  1. TETRABENAZINE. [Suspect]
     Active Substance: TETRABENAZINE
     Dosage: 87.5 MILLIGRAM, QD
  2. TETRABENAZINE. [Suspect]
     Active Substance: TETRABENAZINE
     Dosage: 87.5 MG, QD
  3. CLOZAPINE. [Suspect]
     Active Substance: CLOZAPINE
     Indication: MANIA
     Dosage: 25 MILLIGRAM, QD
  4. ARIPIPRAZOLE. [Suspect]
     Active Substance: ARIPIPRAZOLE
     Indication: MANIA
     Dosage: UNK
  5. TETRABENAZINE. [Suspect]
     Active Substance: TETRABENAZINE
     Indication: PRODUCT USED FOR UNKNOWN INDICATION
     Dosage: 137.5 MG, QD
  6. TETRABENAZINE. [Suspect]
     Active Substance: TETRABENAZINE
     Dosage: 100 MG, QD
  7. TETRABENAZINE. [Suspect]
     Active Substance: TETRABENAZINE
     Dosage: 112.5 MILLIGRAM, QD
  8. QUETIAPINE. [Suspect]
     Active Substance: QUETIAPINE
     Indication: MANIA
     Dosage: UNK
     Route: 048
     Dates: start: 1992
  9. PERPHENAZINE. [Suspect]
     Active Substance: PERPHENAZINE
     Indication: MANIA
     Dosage: UNK
  10. LAMOTRIGINE. [Suspect]
     Active Substance: LAMOTRIGINE
     Indication: BIPOLAR DISORDER
     Dosage: 200 MG, QD
  11. TETRABENAZINE. [Suspect]
     Active Substance: TETRABENAZINE
     Dosage: 75 MG, QD
  12. CLOZAPINE. [Suspect]
     Active Substance: CLOZAPINE
     Indication: TARDIVE DYSKINESIA
     Dosage: UNK
  13. QUETIAPINE. [Suspect]
     Active Substance: QUETIAPINE
     Indication: BIPOLAR DISORDER
  14. TETRABENAZINE. [Suspect]
     Active Substance: TETRABENAZINE
     Dosage: 62.5 MG, QD
  15. TETRABENAZINE. [Suspect]
     Active Substance: TETRABENAZINE
     Dosage: 12.5 MG, QD
  16. TETRABENAZINE. [Suspect]
     Active Substance: TETRABENAZINE
     Dosage: 125 MILLIGRAM, QD

REACTIONS (3)
  - Hyponatraemia [Unknown]
  - Hallucination [Unknown]
  - Tardive dyskinesia [Recovered/Resolved]

NARRATIVE: CASE EVENT DATE: 2008
